FAERS Safety Report 11379721 (Version 1)
Quarter: 2015Q3

REPORT INFORMATION
  Report Type: Spontaneous
  Country: US (occurrence: US)
  Receive Date: 20150814
  Receipt Date: 20150814
  Transmission Date: 20151125
  Serious: No
  Sender: FDA-Public Use
  Company Number: US-ASTRAZENECA-2015SE75953

PATIENT
  Age: 964 Month
  Sex: Male
  Weight: 122.5 kg

DRUGS (20)
  1. LIPITOR [Concomitant]
     Active Substance: ATORVASTATIN CALCIUM
     Indication: BLOOD CHOLESTEROL INCREASED
     Route: 048
  2. FUROSEMIDE. [Concomitant]
     Active Substance: FUROSEMIDE
     Indication: POLYURIA
     Route: 031
  3. FUROSEMIDE. [Concomitant]
     Active Substance: FUROSEMIDE
     Indication: POLYURIA
     Route: 048
  4. TRICOR [Concomitant]
     Active Substance: FENOFIBRATE
     Indication: HYPERLIPIDAEMIA
     Route: 048
  5. FUROSEMIDE. [Concomitant]
     Active Substance: FUROSEMIDE
     Indication: POLYURIA
     Route: 048
  6. BYDUREON [Suspect]
     Active Substance: EXENATIDE
     Indication: TYPE 2 DIABETES MELLITUS
     Route: 058
     Dates: start: 20150803
  7. LUMEGAN [Concomitant]
     Indication: EYE DISORDER
     Dosage: 0.01%
  8. ASPIRIN. [Concomitant]
     Active Substance: ASPIRIN
     Indication: CARDIAC DISORDER
  9. BYDUREON [Suspect]
     Active Substance: EXENATIDE
     Indication: TYPE 2 DIABETES MELLITUS
     Route: 058
     Dates: start: 201505, end: 201507
  10. POTASSIUM [Concomitant]
     Active Substance: POTASSIUM
     Indication: VITAMIN SUPPLEMENTATION
  11. ISOSORBIDE. [Concomitant]
     Active Substance: ISOSORBIDE
     Indication: HYPERTENSION
     Route: 048
  12. CLOPIDOGREL [Concomitant]
     Active Substance: CLOPIDOGREL BISULFATE
     Route: 048
  13. COZAAR [Concomitant]
     Active Substance: LOSARTAN POTASSIUM
     Indication: HYPERTENSION
     Route: 048
  14. METFORMIN [Concomitant]
     Active Substance: METFORMIN HYDROCHLORIDE
     Indication: TYPE 2 DIABETES MELLITUS
     Route: 048
  15. FUROSEMIDE. [Concomitant]
     Active Substance: FUROSEMIDE
     Indication: POLYURIA
     Route: 048
  16. UROXATRAL [Concomitant]
     Active Substance: ALFUZOSIN HYDROCHLORIDE
     Indication: PROSTATOMEGALY
  17. LOTREL [Concomitant]
     Active Substance: AMLODIPINE BESYLATE\BENAZEPRIL HYDROCHLORIDE
     Indication: HYPERTENSION
  18. FUROSEMIDE. [Concomitant]
     Active Substance: FUROSEMIDE
     Indication: POLYURIA
     Route: 048
  19. FUROSEMIDE. [Concomitant]
     Active Substance: FUROSEMIDE
     Indication: POLYURIA
     Route: 048
  20. METOPROLOL TARTRATE. [Suspect]
     Active Substance: METOPROLOL TARTRATE
     Indication: HYPERTENSION
     Route: 048

REACTIONS (5)
  - Injection site extravasation [Not Recovered/Not Resolved]
  - Underdose [Not Recovered/Not Resolved]
  - Injection site pruritus [Recovered/Resolved]
  - Off label use [Unknown]
  - Injection site mass [Recovered/Resolved]

NARRATIVE: CASE EVENT DATE: 201505
